FAERS Safety Report 6633388-1 (Version None)
Quarter: 2010Q1

REPORT INFORMATION
  Report Type: 
  Country: None (occurrence: None)
  Receive Date: 20100312
  Receipt Date: 20100303
  Transmission Date: 20100710
  Serious: Yes (Other)
  Sender: FDA-Public Use
  Company Number: CA-ABBOTT-10P-028-0629044-00

PATIENT
  Sex: Male

DRUGS (3)
  1. LIPIDIL [Suspect]
     Indication: BLOOD CHOLESTEROL
     Dates: start: 20091126
  2. LIPITOR [Concomitant]
     Indication: BLOOD CHOLESTEROL INCREASED
  3. UNSPECIFIED MEDICATION [Concomitant]
     Indication: BLOOD PRESSURE

REACTIONS (2)
  - DIABETES MELLITUS [None]
  - RENAL FAILURE [None]
